FAERS Safety Report 8227269-X (Version None)
Quarter: 2012Q1

REPORT INFORMATION
  Report Type: 
  Country: None (occurrence: None)
  Receive Date: 20120322
  Receipt Date: 20120315
  Transmission Date: 20120608
  Serious: Yes (Death, Other)
  Sender: FDA-Public Use
  Company Number: PHHY2011IE115092

PATIENT
  Sex: Female

DRUGS (1)
  1. SANDOSTATIN LAR [Suspect]
     Indication: NEOPLASM MALIGNANT
     Dosage: 30 MG, EVERY 21 DAYS
     Route: 030

REACTIONS (4)
  - MUSCLE ATROPHY [None]
  - DEATH [None]
  - ASTHENIA [None]
  - DERMAL CYST [None]
